FAERS Safety Report 21056116 (Version 1)
Quarter: 2022Q3

REPORT INFORMATION
  Report Type: Spontaneous
  Country: NL (occurrence: NL)
  Receive Date: 20220708
  Receipt Date: 20220708
  Transmission Date: 20221027
  Serious: Yes (Death, Hospitalization, Other)
  Sender: FDA-Public Use
  Company Number: NL-ABBVIE-22K-114-4442340-00

PATIENT
  Sex: Female

DRUGS (4)
  1. CIPROFLOXACIN [Suspect]
     Active Substance: CIPROFLOXACIN
     Indication: Product used for unknown indication
     Dosage: UNK
     Route: 065
     Dates: start: 202112
  2. VENETOCLAX [Suspect]
     Active Substance: VENETOCLAX
     Indication: Acute myeloid leukaemia
     Dosage: 100 MILLIGRAM, ONCE A DAY
     Route: 065
     Dates: start: 202112, end: 202112
  3. VENETOCLAX [Suspect]
     Active Substance: VENETOCLAX
     Dosage: 200 MILLIGRAM, ONCE A DAY
     Route: 065
  4. VENETOCLAX [Suspect]
     Active Substance: VENETOCLAX
     Dosage: 400 MILLIGRAM, ONCE A DAY
     Route: 065

REACTIONS (6)
  - Acute myeloid leukaemia recurrent [Fatal]
  - Bronchopulmonary aspergillosis [Unknown]
  - Sepsis [Unknown]
  - Urinary retention [Unknown]
  - Hyperglycaemia [Unknown]
  - Unevaluable event [Unknown]
